FAERS Safety Report 5910842-9 (Version None)
Quarter: 2008Q4

REPORT INFORMATION
  Report Type: 
  Country: None (occurrence: None)
  Receive Date: 20081006
  Receipt Date: 20081006
  Transmission Date: 20090506
  Serious: No
  Sender: FDA-Public Use
  Company Number: None

PATIENT
  Age: 8 Year
  Sex: Male
  Weight: 23.587 kg

DRUGS (1)
  1. SINGULAIR [Suspect]
     Indication: ASTHMA
     Dosage: ONCE DAILY PO
     Route: 048
     Dates: start: 20030717, end: 20070620

REACTIONS (3)
  - ATTENTION DEFICIT/HYPERACTIVITY DISORDER [None]
  - SELF-INJURIOUS IDEATION [None]
  - VIOLENCE-RELATED SYMPTOM [None]
